FAERS Safety Report 20368657 (Version 4)
Quarter: 2022Q1

REPORT INFORMATION
  Report Type: Spontaneous
  Country: JP (occurrence: JP)
  Receive Date: 20220124
  Receipt Date: 20220321
  Transmission Date: 20220423
  Serious: Yes (Other)
  Sender: FDA-Public Use
  Company Number: JP-AMGEN-JPNSP2022008671

PATIENT
  Age: 88 Year
  Sex: Female

DRUGS (3)
  1. EVENITY [Suspect]
     Active Substance: ROMOSOZUMAB-AQQG
     Indication: Osteoporosis
     Dosage: 210 MILLIGRAM
     Route: 058
     Dates: start: 20210811
  2. SAHNE [Concomitant]
     Indication: Hyperkeratosis
     Dosage: 1.2 GRAM, QD
     Dates: start: 20211206
  3. HAEMOLEX [Concomitant]
     Indication: Haemorrhoids
     Dosage: 4 GRAM, QD
     Dates: start: 20210811

REACTIONS (2)
  - Femur fracture [Recovering/Resolving]
  - Fall [Recovering/Resolving]

NARRATIVE: CASE EVENT DATE: 20211227
